FAERS Safety Report 23124148 (Version 1)
Quarter: 2023Q4

REPORT INFORMATION
  Report Type: Spontaneous
  Country: AU (occurrence: AU)
  Receive Date: 20231030
  Receipt Date: 20231030
  Transmission Date: 20240110
  Serious: Yes (Other)
  Sender: FDA-Public Use
  Company Number: AU-JNJFOC-20231050154

PATIENT
  Sex: Female

DRUGS (3)
  1. VELCADE [Suspect]
     Active Substance: BORTEZOMIB
     Indication: Plasma cell myeloma
     Dosage: 1.3 MILLIGRAM/SQ. METER
     Route: 058
  2. DEXAMETHASONE [Suspect]
     Active Substance: DEXAMETHASONE
     Indication: Plasma cell myeloma
     Dosage: 20 MILLIGRAM
     Route: 048
  3. MEZIGDOMIDE [Suspect]
     Active Substance: MEZIGDOMIDE
     Indication: Plasma cell myeloma
     Dosage: UNK
     Route: 048

REACTIONS (12)
  - COVID-19 [Unknown]
  - Peripheral sensory neuropathy [Unknown]
  - Neutropenia [Unknown]
  - Thrombocytopenia [Unknown]
  - Pneumonia [Unknown]
  - Anaemia [Unknown]
  - Diarrhoea [Unknown]
  - Constipation [Unknown]
  - Fatigue [Unknown]
  - Insomnia [Unknown]
  - Dizziness [Unknown]
  - Asthenia [Unknown]
